FAERS Safety Report 6953152-3 (Version None)
Quarter: 2010Q3

REPORT INFORMATION
  Report Type: 
  Country: None (occurrence: None)
  Receive Date: 20100829
  Receipt Date: 20100601
  Transmission Date: 20110219
  Serious: No
  Sender: FDA-Public Use
  Company Number: US-ABBOTT-10P-163-0648290-00

PATIENT
  Sex: Male
  Weight: 96.702 kg

DRUGS (1)
  1. NIASPAN [Suspect]
     Indication: HIGH DENSITY LIPOPROTEIN DECREASED
     Dates: start: 20100525

REACTIONS (3)
  - ERYTHEMA [None]
  - FLUSHING [None]
  - HOT FLUSH [None]
